FAERS Safety Report 6952274-0 (Version None)
Quarter: 2010Q3

REPORT INFORMATION
  Report Type: 
  Country: None (occurrence: None)
  Receive Date: 20100829
  Receipt Date: 20100428
  Transmission Date: 20110219
  Serious: No
  Sender: FDA-Public Use
  Company Number: US-ABBOTT-10P-163-0641376-00

PATIENT
  Sex: Female
  Weight: 63.56 kg

DRUGS (2)
  1. NIASPAN [Suspect]
     Indication: HIGH DENSITY LIPOPROTEIN DECREASED
     Dosage: 500 MG AT BEDTIME
     Dates: start: 20100317
  2. DOXYCYCLINE [Concomitant]
     Indication: ROSACEA

REACTIONS (6)
  - BURNING SENSATION [None]
  - CHEST PAIN [None]
  - FLUSHING [None]
  - PRURITUS [None]
  - SKIN BURNING SENSATION [None]
  - THROAT IRRITATION [None]
